FAERS Safety Report 4909238-8 (Version None)
Quarter: 2006Q1

REPORT INFORMATION
  Report Type: 
  Country: None (occurrence: None)
  Receive Date: 20060210
  Receipt Date: 20060210
  Transmission Date: 20060701
  Serious: Yes (Life-Threatening, Hospitalization, Other)
  Sender: FDA-Public Use
  Company Number: None

PATIENT
  Age: 34 Year
  Sex: Female
  Weight: 90.7194 kg

DRUGS (1)
  1. ORTHO EVRA [Suspect]
     Indication: CONTRACEPTION
     Dosage: 1 PATCH /WK TRANSDERMAL
     Route: 062
     Dates: start: 20050603, end: 20050801

REACTIONS (3)
  - PULMONARY THROMBOSIS [None]
  - THROMBOSIS [None]
  - VENA CAVA THROMBOSIS [None]
